FAERS Safety Report 23673707 (Version 2)
Quarter: 2024Q2

REPORT INFORMATION
  Report Type: Spontaneous
  Country: DE (occurrence: DE)
  Receive Date: 20240326
  Receipt Date: 20240402
  Transmission Date: 20240716
  Serious: Yes (Life-Threatening, Hospitalization, Other)
  Sender: FDA-Public Use
  Company Number: None

PATIENT
  Age: 57 Year
  Sex: Female
  Weight: 59 kg

DRUGS (7)
  1. TOLVAPTAN [Suspect]
     Active Substance: TOLVAPTAN
     Indication: Renal cyst
     Dosage: 90 MG
     Route: 048
     Dates: start: 20230816, end: 20231229
  2. TOLVAPTAN [Suspect]
     Active Substance: TOLVAPTAN
     Indication: Renal impairment
     Dosage: 30 MG
     Route: 048
     Dates: start: 20230816, end: 20231229
  3. TOLVAPTAN [Suspect]
     Active Substance: TOLVAPTAN
     Dosage: 45 MG
     Route: 065
  4. TOLVAPTAN [Suspect]
     Active Substance: TOLVAPTAN
     Dosage: 15 MG
     Route: 065
  5. PANTOPRAZOLE [Concomitant]
     Active Substance: PANTOPRAZOLE
     Indication: Gastrooesophageal reflux disease
     Dosage: 40 MG, AS NECESSARY (0-0-1 AS NEEDED (RARE))
     Route: 065
     Dates: start: 20170509
  6. RAMIPRIL [Concomitant]
     Active Substance: RAMIPRIL
     Indication: Hypertension
     Dosage: 1.25 MG (0.5-0-0.5)
     Route: 048
     Dates: start: 20231031
  7. RAMIPRIL [Concomitant]
     Active Substance: RAMIPRIL
     Indication: Renal cyst

REACTIONS (10)
  - Femur fracture [Not Recovered/Not Resolved]
  - Syncope [Recovered/Resolved]
  - Fall [Recovered/Resolved]
  - Haemoglobin decreased [Unknown]
  - Hyperglycaemia [Recovered/Resolved]
  - Fracture pain [Not Recovered/Not Resolved]
  - Blood creatinine increased [Recovered/Resolved]
  - Nocturia [Not Recovered/Not Resolved]
  - Fatigue [Unknown]
  - Product use in unapproved indication [Unknown]

NARRATIVE: CASE EVENT DATE: 20230801
